FAERS Safety Report 13595676 (Version 1)
Quarter: 2017Q2

REPORT INFORMATION
  Report Type: Spontaneous
  Country: US (occurrence: US)
  Receive Date: 20170531
  Receipt Date: 20170531
  Transmission Date: 20170830
  Serious: No
  Sender: FDA-Public Use
  Company Number: US-JNJFOC-20170427431

PATIENT
  Sex: Female
  Weight: 59.42 kg

DRUGS (1)
  1. CHILDRENS TYLENOL [Suspect]
     Active Substance: ACETAMINOPHEN
     Indication: JAW FRACTURE
     Route: 048

REACTIONS (3)
  - Product use issue [Unknown]
  - Expired product administered [Unknown]
  - Product use in unapproved indication [Unknown]
